FAERS Safety Report 4784440-7 (Version None)
Quarter: 2005Q3

REPORT INFORMATION
  Report Type: 
  Country: None (occurrence: None)
  Receive Date: 20050929
  Receipt Date: 20050929
  Transmission Date: 20060218
  Serious: Yes (Other)
  Sender: FDA-Public Use
  Company Number: None

PATIENT
  Age: 60 Year
  Sex: Male

DRUGS (2)
  1. PROMETHAZINE [Suspect]
     Indication: NAUSEA
     Dosage: 12.5 MG IV BOLUS
     Route: 040
     Dates: start: 20050711, end: 20050712
  2. MEPERIDINE [Suspect]
     Indication: PAIN
     Dosage: 25 MG IV BOLUS
     Route: 040
     Dates: start: 20050711, end: 20050712

REACTIONS (1)
  - ERYTHEMA [None]
